FAERS Safety Report 5094076-9 (Version None)
Quarter: 2006Q3

REPORT INFORMATION
  Report Type: 
  Country: None (occurrence: None)
  Receive Date: 20060831
  Receipt Date: 20060821
  Transmission Date: 20061208
  Serious: Yes (Other)
  Sender: FDA-Public Use
  Company Number: MY-ROCHE-460562

PATIENT
  Age: 6 Month
  Sex: Male

DRUGS (4)
  1. ROCEPHIN [Suspect]
     Indication: INFECTION
     Dosage: FORM REPORTED AS VIAL.
     Route: 042
  2. KETAMIN [Concomitant]
  3. DOBUTAMINE HCL [Concomitant]
  4. MIDAZOLAM HYDROCHLORIDE [Concomitant]

REACTIONS (4)
  - CYANOSIS [None]
  - GASTROINTESTINAL MOTILITY DISORDER [None]
  - LOSS OF CONSCIOUSNESS [None]
  - TONIC CONVULSION [None]
